FAERS Safety Report 7786169-X (Version None)
Quarter: 2011Q3

REPORT INFORMATION
  Report Type: 
  Country: None (occurrence: None)
  Receive Date: 20110929
  Receipt Date: 20110922
  Transmission Date: 20111222
  Serious: Yes (Hospitalization, Other)
  Sender: FDA-Public Use
  Company Number: JP-B.I. PHARMACEUTICALS,INC./RIDGEFIELD-2011-BP-20579NB

PATIENT
  Age: 97 Year
  Sex: Male

DRUGS (8)
  1. PRADAXA [Suspect]
     Indication: ATRIAL FIBRILLATION
     Dosage: 110 MG
     Route: 048
     Dates: start: 20110725, end: 20110822
  2. ALLOPURINOL [Suspect]
     Route: 065
  3. DIGOXIN [Suspect]
     Route: 065
  4. ENALAPRIL MALEATE [Suspect]
     Route: 065
  5. LASIX [Suspect]
     Route: 065
  6. ALDACTONE [Suspect]
     Route: 065
  7. GASMOTIN [Suspect]
     Route: 065
  8. MEXITIL [Concomitant]
     Route: 065
     Dates: end: 20110915

REACTIONS (2)
  - SUBDURAL HAEMATOMA [None]
  - LIVER DISORDER [None]
